FAERS Safety Report 13285340 (Version 1)
Quarter: 2017Q1

REPORT INFORMATION
  Report Type: Spontaneous
  Country: US (occurrence: US)
  Receive Date: 20170301
  Receipt Date: 20170301
  Transmission Date: 20170428
  Serious: Yes (Death)
  Sender: FDA-Public Use
  Company Number: None

PATIENT
  Age: 59 Year
  Sex: Male

DRUGS (1)
  1. LETAIRIS [Suspect]
     Active Substance: AMBRISENTAN
     Indication: PULMONARY ARTERIAL HYPERTENSION
     Route: 048
     Dates: start: 20140918, end: 20170205

REACTIONS (4)
  - Clostridial sepsis [None]
  - Urinary tract infection [None]
  - Hypokalaemia [None]
  - Hypotension [None]

NARRATIVE: CASE EVENT DATE: 20170206
